FAERS Safety Report 24982413 (Version 4)
Quarter: 2025Q2

REPORT INFORMATION
  Report Type: Spontaneous
  Country: IN (occurrence: IN)
  Receive Date: 20250218
  Receipt Date: 20250415
  Transmission Date: 20250717
  Serious: Yes (Hospitalization, Other)
  Sender: SANDOZ
  Company Number: IN-SANDOZ-SDZ2025IN008966

PATIENT
  Sex: Male

DRUGS (4)
  1. MYFORTIC [Suspect]
     Active Substance: MYCOPHENOLATE SODIUM
     Indication: Renal transplant
     Dosage: 1080 MG, QD, 360 MG, TID
     Route: 048
  2. TACROLIMUS [Suspect]
     Active Substance: TACROLIMUS
     Dosage: 2 MG, BID
     Route: 048
  3. TACROLIMUS [Suspect]
     Active Substance: TACROLIMUS
     Indication: Renal transplant
     Dosage: 5 MG, QD, 2.5 MG, BID
     Route: 048
  4. HEPARIN [Concomitant]
     Active Substance: HEPARIN SODIUM
     Indication: Atrial fibrillation
     Route: 065

REACTIONS (23)
  - Urinary tract infection [Unknown]
  - Myocardial necrosis marker increased [Unknown]
  - Ventricular hypokinesia [Unknown]
  - Atrial fibrillation [Unknown]
  - Renal impairment [Unknown]
  - Sepsis [Unknown]
  - Cardiac failure acute [Unknown]
  - Lower respiratory tract infection [Unknown]
  - Infection [Unknown]
  - Hypoalbuminaemia [Unknown]
  - Toxicity to various agents [Unknown]
  - Pallor [Unknown]
  - Cardiovascular disorder [Unknown]
  - Chest discomfort [Unknown]
  - Palpitations [Unknown]
  - Dysuria [Unknown]
  - Electrolyte imbalance [Unknown]
  - Oedema peripheral [Unknown]
  - Urine output decreased [Unknown]
  - Pain [Unknown]
  - Cytomegalovirus infection [Unknown]
  - Hypertension [Unknown]
  - Off label use [Unknown]
